FAERS Safety Report 6391833-3 (Version None)
Quarter: 2009Q4

REPORT INFORMATION
  Report Type: 
  Country: None (occurrence: None)
  Receive Date: 20091005
  Receipt Date: 20090826
  Transmission Date: 20100525
  Serious: Yes (Hospitalization)
  Sender: FDA-Public Use
  Company Number: 20096816

PATIENT

DRUGS (1)
  1. LIORESAL [Suspect]
     Indication: MUSCLE SPASTICITY
     Dosage: 990 MCG, DAILY, INTRATHECAI
     Route: 037

REACTIONS (4)
  - ENDOTRACHEAL INTUBATION [None]
  - HAEMATOMA [None]
  - LOCAL SWELLING [None]
  - PRODUCT COLOUR ISSUE [None]
